FAERS Safety Report 15677321 (Version 1)
Quarter: 2018Q4

REPORT INFORMATION
  Report Type: Spontaneous
  Country: US (occurrence: US)
  Receive Date: 20181130
  Receipt Date: 20181130
  Transmission Date: 20190205
  Serious: Yes (Hospitalization, Other)
  Sender: FDA-Public Use
  Company Number: US-SANIK-2018SA325200AA

PATIENT
  Age: 63 Year
  Sex: Male
  Weight: 86.18 kg

DRUGS (10)
  1. ACETYLSALICYLIC ACID [Suspect]
     Active Substance: ASPIRIN
     Indication: PRODUCT USED FOR UNKNOWN INDICATION
     Dosage: UNK UNK, UNK
     Route: 065
     Dates: end: 201807
  2. HUMIRA [Suspect]
     Active Substance: ADALIMUMAB
     Indication: COLITIS ULCERATIVE
     Dosage: 40 MG, QW
     Route: 058
     Dates: end: 2018
  3. PLAVIX [Suspect]
     Active Substance: CLOPIDOGREL BISULFATE
     Indication: PRODUCT USED FOR UNKNOWN INDICATION
     Dosage: UNK
     Route: 065
     Dates: end: 201807
  4. ACETYLSALICYLIC ACID [Suspect]
     Active Substance: ASPIRIN
     Route: 065
     Dates: end: 2018
  5. ATORVASTATIN [Concomitant]
     Active Substance: ATORVASTATIN
  6. HUMIRA [Suspect]
     Active Substance: ADALIMUMAB
     Indication: CROHN^S DISEASE
     Dosage: UNK
     Route: 058
  7. METFORMIN [Concomitant]
     Active Substance: METFORMIN HYDROCHLORIDE
  8. PLAVIX [Suspect]
     Active Substance: CLOPIDOGREL BISULFATE
     Dosage: UNK UNK, UNK
     Route: 065
     Dates: start: 2018, end: 2018
  9. LISINOPRIL. [Concomitant]
     Active Substance: LISINOPRIL
  10. RANEXA [Concomitant]
     Active Substance: RANOLAZINE

REACTIONS (7)
  - Prostatic perforation [Unknown]
  - Impaired healing [Unknown]
  - Coagulation time prolonged [Unknown]
  - Benign prostatic hyperplasia [Recovering/Resolving]
  - Device related infection [Recovering/Resolving]
  - Coronary artery occlusion [Unknown]
  - Prostatic haemorrhage [Unknown]

NARRATIVE: CASE EVENT DATE: 2018
